FAERS Safety Report 10060173 (Version 1)
Quarter: 2014Q2

REPORT INFORMATION
  Report Type: Spontaneous
  Country: US (occurrence: US)
  Receive Date: 20140404
  Receipt Date: 20140404
  Transmission Date: 20141212
  Serious: No
  Sender: FDA-Public Use
  Company Number: US-GLAXOSMITHKLINE-A1057463A

PATIENT
  Age: 38 Year
  Sex: Female

DRUGS (1)
  1. ALLI [Suspect]
     Indication: WEIGHT DECREASED
     Dates: start: 20140109, end: 20140119

REACTIONS (9)
  - Hypersensitivity [Not Recovered/Not Resolved]
  - Urticaria [Recovered/Resolved]
  - Pruritus generalised [Unknown]
  - Eye pruritus [Recovered/Resolved]
  - Ear pruritus [Recovered/Resolved]
  - Pruritus [Unknown]
  - Pruritus [Unknown]
  - Pruritus genital [Recovered/Resolved]
  - Frequent bowel movements [Unknown]
